FAERS Safety Report 22007198 (Version 1)
Quarter: 2023Q1

REPORT INFORMATION
  Report Type: Spontaneous
  Country: US (occurrence: US)
  Receive Date: 20230217
  Receipt Date: 20230217
  Transmission Date: 20230417
  Serious: No
  Sender: FDA-Public Use
  Company Number: US-drreddys-SPO/USA/23/0160109

PATIENT
  Age: 19 Year

DRUGS (2)
  1. ACCUTANE [Suspect]
     Active Substance: ISOTRETINOIN
     Indication: Product used for unknown indication
     Dosage: RMA ISSUE DATE: 25 MARCH 2022 04:13:31 PM, 3 JUNE 2022 09:53:05 AM, 12 JULY 2022 09:48:38 AM, 16 AUG
  2. ACCUTANE [Suspect]
     Active Substance: ISOTRETINOIN
     Dosage: RMA ISSUE DATE: 22 APRIL 2022 01:43:01 PM

REACTIONS (1)
  - Treatment noncompliance [Unknown]
